FAERS Safety Report 4826412-X (Version None)
Quarter: 2005Q4

REPORT INFORMATION
  Report Type: 
  Country: None (occurrence: None)
  Receive Date: 20051014
  Receipt Date: 20050816
  Transmission Date: 20060501
  Serious: No
  Sender: FDA-Public Use
  Company Number: 2005SP002365

PATIENT
  Age: 67 Year
  Weight: 78.4723 kg

DRUGS (3)
  1. LUNESTA [Suspect]
     Indication: INSOMNIA
     Dosage: 3 MG;HS;ORAL
     Route: 048
     Dates: start: 20050801, end: 20050801
  2. AMBIEN [Concomitant]
  3. TYLENOL (CAPLET) [Concomitant]

REACTIONS (1)
  - DYSGEUSIA [None]
